FAERS Safety Report 6850180-3 (Version None)
Quarter: 2010Q3

REPORT INFORMATION
  Report Type: 
  Country: None (occurrence: None)
  Receive Date: 20100716
  Receipt Date: 20100708
  Transmission Date: 20110219
  Serious: Yes (Other)
  Sender: FDA-Public Use
  Company Number: US-ABBOTT-10P-163-0656196-00

PATIENT
  Sex: Male
  Weight: 56.75 kg

DRUGS (10)
  1. HUMIRA [Suspect]
     Indication: CROHN'S DISEASE
     Dosage: LOADING DOSE
     Route: 058
     Dates: start: 20100628, end: 20100628
  2. HUMIRA [Suspect]
  3. HUMIRA [Suspect]
  4. LISINOPRIL [Concomitant]
     Indication: HYPERTENSION
     Dosage: DAILY DOSE: 1/2 TAB=40MG
  5. CARDEDILOL [Concomitant]
     Indication: HYPERTENSION
  6. AMLODIPINE [Concomitant]
     Indication: HYPERTENSION
  7. AZATHIOPRINE [Concomitant]
     Indication: CROHN'S DISEASE
  8. TRAMADOL [Concomitant]
     Indication: PAIN
  9. POTASSIUM CHLORIDE [Concomitant]
     Indication: CROHN'S DISEASE
  10. BUTALBITAL [Concomitant]
     Indication: HEADACHE

REACTIONS (6)
  - CHILLS [None]
  - DEHYDRATION [None]
  - FATIGUE [None]
  - HEADACHE [None]
  - HYPERHIDROSIS [None]
  - NAUSEA [None]
